FAERS Safety Report 15619738 (Version 1)
Quarter: 2018Q4

REPORT INFORMATION
  Report Type: Spontaneous
  Country: US (occurrence: US)
  Receive Date: 20181115
  Receipt Date: 20181115
  Transmission Date: 20190205
  Serious: No
  Sender: FDA-Public Use
  Company Number: US-UNITED THERAPEUTICS-UNT-2018-016833

PATIENT
  Sex: Male
  Weight: 73.16 kg

DRUGS (1)
  1. TYVASO [Suspect]
     Active Substance: TREPROSTINIL
     Indication: PULMONARY ARTERIAL HYPERTENSION
     Dosage: 60-120 MICROGRAMS, QID
     Dates: start: 20160920

REACTIONS (3)
  - Dyspnoea [Unknown]
  - Dyspnoea exertional [Unknown]
  - Off label use [Unknown]
